FAERS Safety Report 19263159 (Version 1)
Quarter: 2021Q2

REPORT INFORMATION
  Report Type: Spontaneous
  Country: FR (occurrence: FR)
  Receive Date: 20210517
  Receipt Date: 20210517
  Transmission Date: 20210717
  Serious: No
  Sender: FDA-Public Use
  Company Number: FR-ALKEM LABORATORIES LIMITED-FR-ALKEM-2021-01715

PATIENT

DRUGS (4)
  1. PREGABALIN. [Suspect]
     Active Substance: PREGABALIN
     Indication: SUBSTANCE USE
     Dosage: UNK
     Route: 065
  2. METHADONE HYDROCHLORIDE. [Suspect]
     Active Substance: METHADONE HYDROCHLORIDE
     Indication: SUBSTANCE USE
     Dosage: UNK
     Route: 065
  3. BUPRENORPHINE. [Suspect]
     Active Substance: BUPRENORPHINE
     Indication: SUBSTANCE USE
     Dosage: UNK
     Route: 065
  4. OPIOIDS [Suspect]
     Active Substance: UNSPECIFIED INGREDIENT
     Indication: SUBSTANCE USE
     Dosage: UNK
     Route: 065

REACTIONS (1)
  - Substance use [Unknown]
